FAERS Safety Report 7533137-9 (Version None)
Quarter: 2011Q2

REPORT INFORMATION
  Report Type: 
  Country: None (occurrence: None)
  Receive Date: 20110608
  Receipt Date: 20110606
  Transmission Date: 20111010
  Serious: Yes (Other)
  Sender: FDA-Public Use
  Company Number: GB-PFIZER INC-2011007712

PATIENT
  Sex: Male

DRUGS (3)
  1. VARENICLINE TARTRATE [Suspect]
     Indication: SMOKING CESSATION THERAPY
     Dosage: 1 G, 2X/DAY
     Dates: start: 20100101
  2. WARFARIN SODIUM [Suspect]
     Dosage: 6 MG, 1X/DAY
  3. SIMVASTATIN [Concomitant]
     Indication: BLOOD CHOLESTEROL INCREASED
     Dosage: 40 MG, UNK
     Route: 048
     Dates: start: 20090119

REACTIONS (5)
  - ANAEMIA [None]
  - DRUG WITHDRAWAL SYNDROME [None]
  - INTERNATIONAL NORMALISED RATIO INCREASED [None]
  - INCREASED TENDENCY TO BRUISE [None]
  - DRUG INTERACTION [None]
